FAERS Safety Report 7384960-5 (Version None)
Quarter: 2011Q1

REPORT INFORMATION
  Report Type: 
  Country: None (occurrence: None)
  Receive Date: 20110330
  Receipt Date: 20110321
  Transmission Date: 20110831
  Serious: Yes (Hospitalization)
  Sender: FDA-Public Use
  Company Number: FR-ASTRAZENECA-2011SE16599

PATIENT
  Age: 70 Year
  Sex: Male

DRUGS (5)
  1. CASODEX [Suspect]
     Route: 048
     Dates: start: 20110101, end: 20110209
  2. NEXIUM [Concomitant]
     Route: 048
  3. LASIX [Concomitant]
     Route: 048
  4. TAREG [Concomitant]
     Route: 048
  5. ZANIDIP [Concomitant]
     Route: 048

REACTIONS (3)
  - HEPATITIS CHOLESTATIC [None]
  - CYTOLYTIC HEPATITIS [None]
  - CHOLESTASIS [None]
